FAERS Safety Report 6367745-8 (Version None)
Quarter: 2009Q3

REPORT INFORMATION
  Report Type: 
  Country: None (occurrence: None)
  Receive Date: 20090921
  Receipt Date: 20090916
  Transmission Date: 20100115
  Serious: Yes (Death)
  Sender: FDA-Public Use
  Company Number: PHHY2009JP39937

PATIENT
  Sex: Female

DRUGS (20)
  1. ZOLEDRONATE T29581+ [Suspect]
     Indication: METASTASES TO BONE
     Dosage: 4 MG, QMO
     Route: 042
     Dates: start: 20080125, end: 20080418
  2. MAGNESIUM OXIDE [Concomitant]
     Dosage: 0.5 MG, UNK
     Route: 048
     Dates: start: 20080518, end: 20080523
  3. MORPHINE SULFATE INJ [Concomitant]
     Dosage: 20 MG, UNK
     Route: 048
     Dates: start: 20080519, end: 20080523
  4. OPSO [Concomitant]
     Dosage: 1 DF, UNK
     Route: 048
     Dates: start: 20090519, end: 20090523
  5. KAYTWO [Concomitant]
     Dosage: 10 MG, UNK
     Route: 042
     Dates: start: 20080521, end: 20080523
  6. OMEPRAL [Concomitant]
     Dosage: 20 MG, UNK
     Route: 042
     Dates: start: 20080521, end: 20080523
  7. OXINORM [Concomitant]
     Dosage: 1 DF, UNK
     Route: 048
     Dates: start: 20080518, end: 20080518
  8. SELBEX [Concomitant]
     Dosage: 50 MG, UNK
     Route: 048
     Dates: start: 20080122
  9. MEDICONE [Concomitant]
     Dosage: 45 MG, UNK
     Route: 048
     Dates: start: 20080129, end: 20080204
  10. BISOLVON [Concomitant]
     Dosage: 45 MG, UNK
     Route: 048
     Dates: start: 20080129, end: 20080204
  11. PYRINAZIN [Concomitant]
     Dosage: 0.5 G, UNK
     Route: 048
     Dates: start: 20080817
  12. ORGARAN [Concomitant]
     Dosage: 2 DF, UNK
     Route: 042
     Dates: start: 20080517, end: 20080523
  13. NOVAMIN [Concomitant]
     Dosage: 5 MG, UNK
     Route: 048
     Dates: start: 20080518, end: 20080523
  14. LOXONIN [Concomitant]
     Dosage: 1 DF, UNK
     Route: 048
     Dates: start: 20080122
  15. XELODA [Concomitant]
     Dosage: 2400 MG, UNK
     Route: 048
     Dates: start: 20080112, end: 20080425
  16. AROMASIN [Concomitant]
     Dosage: 25 MG, UNK
     Route: 048
     Dates: start: 20080503, end: 20080516
  17. PYDOXAL [Concomitant]
     Dosage: 30 MG, UNK
     Route: 048
     Dates: start: 20080111, end: 20090505
  18. NAUZELIN [Concomitant]
     Dosage: 30 MG, UNK
     Route: 048
     Dates: start: 20080111
  19. GLYCYRON [Concomitant]
     Dosage: 3 DF, UNK
     Route: 048
     Dates: start: 20080122, end: 20080523
  20. URSO 250 [Concomitant]
     Dosage: 300 MG, UNK
     Route: 048
     Dates: start: 20080122, end: 20080523

REACTIONS (4)
  - COUGH [None]
  - DISSEMINATED INTRAVASCULAR COAGULATION [None]
  - HYPOCALCAEMIA [None]
  - PYREXIA [None]
